FAERS Safety Report 11822996 (Version 1)
Quarter: 2015Q4

REPORT INFORMATION
  Report Type: Spontaneous
  Country: US (occurrence: US)
  Receive Date: 20151210
  Receipt Date: 20151210
  Transmission Date: 20160305
  Serious: No
  Sender: FDA-Public Use
  Company Number: US-AKRIMAX-NRP-00028

PATIENT
  Sex: Male

DRUGS (1)
  1. NITROGLYCERIN LINGUAL AEROSOL; ROUSES POINT PHARMACEUTICALS, LLC [Suspect]
     Active Substance: NITROGLYCERIN
     Indication: CHEST PAIN

REACTIONS (1)
  - Drug ineffective [Unknown]
